FAERS Safety Report 11148405 (Version 1)
Quarter: 2015Q2

REPORT INFORMATION
  Report Type: Spontaneous
  Country: US (occurrence: US)
  Receive Date: 20150529
  Receipt Date: 20150529
  Transmission Date: 20150821
  Serious: Yes (Congenital Anomaly, Other)
  Sender: FDA-Public Use
  Company Number: US-CIPLA LTD.-2015US04147

PATIENT

DRUGS (14)
  1. ZIDOVUDINE. [Suspect]
     Active Substance: ZIDOVUDINE
     Route: 064
  2. ABACAVIR [Suspect]
     Active Substance: ABACAVIR
     Route: 064
  3. TENOFOVIR DISOPROXIL FUMARATE [Suspect]
     Active Substance: TENOFOVIR DISOPROXIL FUMARATE
     Route: 064
  4. EMTRICITABINE [Suspect]
     Active Substance: EMTRICITABINE
     Route: 064
  5. EFAVIRENZ [Suspect]
     Active Substance: EFAVIRENZ
     Route: 064
  6. NELFINAVIR [Suspect]
     Active Substance: NELFINAVIR
     Route: 064
  7. LOPINAVIR/RITONAVIR [Suspect]
     Active Substance: LOPINAVIR\RITONAVIR
     Route: 064
  8. ATAZANAVIR [Suspect]
     Active Substance: ATAZANAVIR
     Route: 064
  9. SAQUINAVIR [Suspect]
     Active Substance: SAQUINAVIR
     Route: 064
  10. DIDANOSINE. [Suspect]
     Active Substance: DIDANOSINE
     Route: 064
  11. NEVIRAPINE. [Suspect]
     Active Substance: NEVIRAPINE
     Route: 064
  12. FOSAMPRENAVIR [Suspect]
     Active Substance: FOSAMPRENAVIR
     Route: 064
  13. RITONAVIR. [Suspect]
     Active Substance: RITONAVIR
     Route: 064
  14. LAMIVUDINE. [Suspect]
     Active Substance: LAMIVUDINE
     Route: 064

REACTIONS (2)
  - Foetal exposure during pregnancy [Unknown]
  - Parvovirus infection [Unknown]
